FAERS Safety Report 10449680 (Version 1)
Quarter: 2014Q3

REPORT INFORMATION
  Report Type: Spontaneous
  Country: US (occurrence: US)
  Receive Date: 20140912
  Receipt Date: 20140912
  Transmission Date: 20150326
  Serious: No
  Sender: FDA-Public Use
  Company Number: US-INCYTE CORPORATION-2014IN001716

PATIENT
  Age: 76 Year
  Sex: Female

DRUGS (14)
  1. LASIX [Concomitant]
     Active Substance: FUROSEMIDE
     Indication: FLUID RETENTION
  2. KETOCONAZOLE. [Suspect]
     Active Substance: KETOCONAZOLE
     Dosage: UNK
     Dates: end: 201405
  3. MICARDIS [Concomitant]
     Active Substance: TELMISARTAN
  4. JAKAFI [Suspect]
     Active Substance: RUXOLITINIB
     Indication: MYELOFIBROSIS
     Dosage: 5 MG, QD
     Route: 048
     Dates: start: 20140509
  5. ATENOLOL. [Concomitant]
     Active Substance: ATENOLOL
  6. INSULIN [Concomitant]
     Active Substance: INSULIN NOS
  7. SYNTHROID [Concomitant]
     Active Substance: LEVOTHYROXINE SODIUM
  8. PRAVACHOL [Concomitant]
     Active Substance: PRAVASTATIN SODIUM
  9. JAKAFI [Suspect]
     Active Substance: RUXOLITINIB
     Dosage: 5 MG, BID
     Route: 048
  10. ZANTAC [Concomitant]
     Active Substance: RANITIDINE HYDROCHLORIDE
  11. ASPIRIN. [Concomitant]
     Active Substance: ASPIRIN
  12. SEPTRA [Concomitant]
     Active Substance: SULFAMETHOXAZOLE\TRIMETHOPRIM
  13. CALCIUM/VITAMIN D                  /01204201/ [Concomitant]
  14. PROGRAF [Concomitant]
     Active Substance: TACROLIMUS\TACROLIMUS ANHYDROUS

REACTIONS (5)
  - Nausea [Recovered/Resolved]
  - Drug interaction [Recovered/Resolved]
  - Joint swelling [Recovered/Resolved]
  - Vomiting [Recovered/Resolved]
  - Diarrhoea [Recovered/Resolved]

NARRATIVE: CASE EVENT DATE: 201405
